FAERS Safety Report 12389927 (Version 1)
Quarter: 2016Q2

REPORT INFORMATION
  Report Type: Spontaneous
  Country: US (occurrence: US)
  Receive Date: 20160520
  Receipt Date: 20160520
  Transmission Date: 20160815
  Serious: No
  Sender: FDA-Public Use
  Company Number: ALCN2016US003265

PATIENT
  Sex: Male

DRUGS (1)
  1. BRIMONIDINE [Suspect]
     Active Substance: BRIMONIDINE TARTRATE
     Indication: INTRAOCULAR PRESSURE INCREASED
     Dosage: 1 GTT, QD
     Route: 047
     Dates: start: 20160404, end: 20160416

REACTIONS (2)
  - Ocular hyperaemia [Recovered/Resolved]
  - Eye pruritus [Recovered/Resolved]

NARRATIVE: CASE EVENT DATE: 20160405
